FAERS Safety Report 5304456-1 (Version None)
Quarter: 2007Q2

REPORT INFORMATION
  Report Type: 
  Country: None (occurrence: None)
  Receive Date: 20070419
  Receipt Date: 20070419
  Transmission Date: 20071010
  Serious: No
  Sender: FDA-Public Use
  Company Number: None

PATIENT
  Sex: Male

DRUGS (1)
  1. FENTANYL [Suspect]
     Indication: NEOPLASM MALIGNANT
     Dosage: 25MCG/HR   Q72H   TRANSDERMAL
     Route: 062
     Dates: start: 20070326, end: 20070327

REACTIONS (1)
  - MEDICATION ERROR [None]
